FAERS Safety Report 5314860-3 (Version None)
Quarter: 2007Q2

REPORT INFORMATION
  Report Type: 
  Country: None (occurrence: None)
  Receive Date: 20070502
  Receipt Date: 20070420
  Transmission Date: 20071010
  Serious: Yes (Other)
  Sender: FDA-Public Use
  Company Number: ATWYE502420APR07

PATIENT
  Age: 18 Year
  Sex: Female

DRUGS (2)
  1. ENBREL [Suspect]
     Dosage: UNKNOWN
     Dates: start: 20070401, end: 20070401
  2. IBUPROFEN [Suspect]

REACTIONS (2)
  - BLEEDING TIME PROLONGED [None]
  - HAEMATOMA [None]
